FAERS Safety Report 7787100-3 (Version None)
Quarter: 2011Q3

REPORT INFORMATION
  Report Type: 
  Country: None (occurrence: None)
  Receive Date: 20110929
  Receipt Date: 20110922
  Transmission Date: 20111222
  Serious: Yes (Life-Threatening, Hospitalization, Other)
  Sender: FDA-Public Use
  Company Number: GB-SANOFI-AVENTIS-2011SA034558

PATIENT
  Age: 74 Year
  Sex: Female

DRUGS (12)
  1. ACETYLSALICYLIC ACID SRT [Suspect]
     Indication: PERICARDITIS
     Route: 065
  2. TENECTEPLASE [Suspect]
     Indication: PERICARDITIS
     Route: 065
  3. ACETYLSALICYLIC ACID SRT [Suspect]
     Indication: PLATELET AGGREGATION INHIBITION
     Route: 065
  4. ACETYLSALICYLIC ACID SRT [Suspect]
     Route: 065
  5. HEPARIN SODIUM [Suspect]
     Indication: PERICARDITIS
     Route: 042
  6. TENECTEPLASE [Suspect]
     Indication: THROMBOLYSIS
     Route: 065
  7. ATENOLOL [Suspect]
     Indication: PERICARDITIS
     Route: 065
  8. HEPARIN SODIUM [Suspect]
     Route: 042
  9. CLOPIDOGREL BISULFATE [Suspect]
     Indication: PERICARDITIS
     Route: 065
  10. TENECTEPLASE [Suspect]
     Route: 065
  11. ATENOLOL [Suspect]
     Route: 065
  12. HEPARIN SODIUM [Suspect]
     Indication: ANTICOAGULANT THERAPY
     Route: 042

REACTIONS (8)
  - SHOCK [None]
  - HYPOTENSION [None]
  - CARDIAC TAMPONADE [None]
  - ANURIA [None]
  - PERICARDIAL HAEMORRHAGE [None]
  - TACHYCARDIA [None]
  - CARDIAC ARREST [None]
  - PULSELESS ELECTRICAL ACTIVITY [None]
